FAERS Safety Report 6476074-3 (Version None)
Quarter: 2009Q4

REPORT INFORMATION
  Report Type: 
  Country: None (occurrence: None)
  Receive Date: 20091204
  Receipt Date: 20090803
  Transmission Date: 20100525
  Serious: Yes (Hospitalization)
  Sender: FDA-Public Use
  Company Number: JP-SANOFI-AVENTIS-D01200904742

PATIENT
  Age: 73 Year
  Sex: Male
  Weight: 61 kg

DRUGS (9)
  1. BLINDED THERAPY [Suspect]
     Dosage: DOSE TEXT: 2 DAYS PLACEBO FOLLOWED BY LOADING DOSE 300MG FOLLOWED BY 75MG DAILYUNIT DOSE: 75 MG
     Route: 048
     Dates: start: 20090212, end: 20090507
  2. BLINDED THERAPY [Suspect]
     Dosage: DOSE TEXT: 2 DAYS PLACEBO FOLLOWED BY LOADING DOSE 300MG FOLLOWED BY 75MG DAILYUNIT DOSE: 75 MG
     Route: 048
     Dates: start: 20090212, end: 20090507
  3. BLINDED THERAPY [Suspect]
     Dosage: UNIT DOSE: 100 MG
     Route: 048
  4. BLINDED THERAPY [Suspect]
     Dosage: UNIT DOSE: 100 MG
     Route: 048
  5. CLOPIDOGREL [Suspect]
     Dosage: UNIT DOSE: 75 MG
     Route: 048
     Dates: start: 20090508
  6. CLOPIDOGREL [Suspect]
     Dosage: UNIT DOSE: 75 MG
     Route: 048
     Dates: start: 20090508
  7. ASPIRIN [Concomitant]
     Dates: start: 20090212
  8. AMLODIPINE [Concomitant]
     Route: 048
     Dates: start: 20090211
  9. IMIDAPRIL HYDROCHLORIDE [Concomitant]
     Route: 065
     Dates: start: 20090211

REACTIONS (1)
  - MALLORY-WEISS SYNDROME [None]
